FAERS Safety Report 20118916 (Version 11)
Quarter: 2024Q4

REPORT INFORMATION
  Report Type: Report from Study
  Country: DE (occurrence: DE)
  Receive Date: 20211126
  Receipt Date: 20241211
  Transmission Date: 20250115
  Serious: No
  Sender: ROCHE
  Company Number: DE-ROCHE-2445206

PATIENT
  Age: 41 Year
  Sex: Male

DRUGS (5)
  1. OCREVUS [Suspect]
     Active Substance: OCRELIZUMAB
     Indication: Relapsing-remitting multiple sclerosis
     Dosage: SUBSEQUENT DOSE: 11/OCT/2019?27/SEP/2019: 300 MG IN 181 DAYS
     Route: 042
     Dates: start: 20190927
  2. OCREVUS [Suspect]
     Active Substance: OCRELIZUMAB
     Route: 042
     Dates: start: 20200528
  3. OCREVUS [Suspect]
     Active Substance: OCRELIZUMAB
     Route: 042
     Dates: start: 20210728
  4. OCREVUS [Suspect]
     Active Substance: OCRELIZUMAB
     Dosage: 600 MG FREQUENCY: 174 DAYS
     Route: 042
     Dates: start: 20190927
  5. ERGOCALCIFEROL [Concomitant]
     Active Substance: ERGOCALCIFEROL

REACTIONS (6)
  - Rash [Recovered/Resolved]
  - Blood lactate dehydrogenase increased [Recovered/Resolved]
  - COVID-19 [Recovered/Resolved]
  - Injection site pain [Recovered/Resolved]
  - Gastrointestinal infection [Recovered/Resolved]
  - Gait disturbance [Not Recovered/Not Resolved]

NARRATIVE: CASE EVENT DATE: 20190927
